FAERS Safety Report 8444524-9 (Version None)
Quarter: 2012Q2

REPORT INFORMATION
  Report Type: 
  Country: None (occurrence: None)
  Receive Date: 20120618
  Receipt Date: 20110601
  Transmission Date: 20120825
  Serious: No
  Sender: FDA-Public Use
  Company Number: US-TEVA-284222USA

PATIENT
  Sex: Female

DRUGS (3)
  1. BUDESONIDE [Concomitant]
  2. ENJUVIA [Suspect]
     Indication: HORMONE REPLACEMENT THERAPY
     Route: 048
     Dates: start: 20110301
  3. ESCITALOPRAM OXALATE [Concomitant]

REACTIONS (2)
  - INSOMNIA [None]
  - FEELING HOT [None]
